FAERS Safety Report 11107741 (Version 2)
Quarter: 2015Q3

REPORT INFORMATION
  Report Type: Spontaneous
  Country: GB (occurrence: GB)
  Receive Date: 20150512
  Receipt Date: 20150729
  Transmission Date: 20151125
  Serious: Yes (Death, Hospitalization)
  Sender: FDA-Public Use
  Company Number: GB-VERTEX PHARMACEUTICALS-2015-002168

PATIENT
  Age: 22 Year
  Sex: Female

DRUGS (1)
  1. KALYDECO [Suspect]
     Active Substance: IVACAFTOR
     Indication: CYSTIC FIBROSIS
     Dosage: 150 MG, BID
     Route: 048
     Dates: start: 20130220

REACTIONS (3)
  - Oxygen saturation decreased [Unknown]
  - Nasopharyngitis [Unknown]
  - Death [Fatal]

NARRATIVE: CASE EVENT DATE: 20150719
